FAERS Safety Report 7241563-0 (Version None)
Quarter: 2011Q1

REPORT INFORMATION
  Report Type: 
  Country: None (occurrence: None)
  Receive Date: 20110124
  Receipt Date: 20110117
  Transmission Date: 20110831
  Serious: Yes (Other)
  Sender: FDA-Public Use
  Company Number: JP-MERCK-1012USA04215

PATIENT
  Age: 87 Year
  Sex: Female

DRUGS (2)
  1. PEPCID RPD [Suspect]
     Route: 048
  2. DOGMATYL [Concomitant]
     Route: 048

REACTIONS (2)
  - BRADYCARDIA [None]
  - SICK SINUS SYNDROME [None]
